FAERS Safety Report 7245700-3 (Version None)
Quarter: 2011Q1

REPORT INFORMATION
  Report Type: 
  Country: None (occurrence: None)
  Receive Date: 20110126
  Receipt Date: 20110118
  Transmission Date: 20110831
  Serious: Yes (Hospitalization)
  Sender: FDA-Public Use
  Company Number: IL-JNJFOC-20110104770

PATIENT
  Age: 45 Year
  Sex: Female
  Weight: 50 kg

DRUGS (4)
  1. PEGFILGRASTIM [Suspect]
     Indication: BREAST CANCER
     Dosage: CYCLE 4
     Route: 058
  2. DOXORUBICIN HYDROCHLORIDE [Suspect]
     Dosage: CYCLES 1-3
     Route: 042
  3. CYCLOPHOSPHAMIDE [Suspect]
     Indication: BREAST CANCER
     Dosage: CYCLE 4
     Route: 065
  4. DOXORUBICIN HYDROCHLORIDE [Suspect]
     Indication: BREAST CANCER
     Dosage: CYCLE 4
     Route: 042

REACTIONS (3)
  - RESPIRATORY FAILURE [None]
  - FEBRILE NEUTROPENIA [None]
  - SEPTIC SHOCK [None]
